FAERS Safety Report 20232118 (Version 1)
Quarter: 2021Q4

REPORT INFORMATION
  Report Type: Spontaneous
  Country: US (occurrence: None)
  Receive Date: 20211224
  Receipt Date: 20211224
  Transmission Date: 20220304
  Serious: Yes (Disabling)
  Sender: FDA-Public Use
  Company Number: None

PATIENT
  Age: 66 Year
  Sex: Female
  Weight: 54 kg

DRUGS (3)
  1. ARIMIDEX [Suspect]
     Active Substance: ANASTROZOLE
  2. ARIMIDEX [Suspect]
     Active Substance: ANASTROZOLE
     Indication: Disease recurrence
  3. ARIMIDEX [Suspect]
     Active Substance: ANASTROZOLE
     Indication: Prophylaxis

REACTIONS (4)
  - Adverse drug reaction [None]
  - Sciatica [None]
  - Tenosynovitis stenosans [None]
  - Trigger finger [None]

NARRATIVE: CASE EVENT DATE: 20211214
